FAERS Safety Report 6289334-6 (Version None)
Quarter: 2009Q3

REPORT INFORMATION
  Report Type: 
  Country: None (occurrence: None)
  Receive Date: 20090730
  Receipt Date: 20090723
  Transmission Date: 20100115
  Serious: Yes (Hospitalization)
  Sender: FDA-Public Use
  Company Number: US-BIOGENIDEC-2009BI023218

PATIENT
  Age: 42 Year
  Sex: Female

DRUGS (1)
  1. AVONEX [Suspect]
     Indication: MULTIPLE SCLEROSIS
     Route: 030
     Dates: end: 20090301

REACTIONS (8)
  - BALANCE DISORDER [None]
  - FALL [None]
  - INFLUENZA LIKE ILLNESS [None]
  - MULTIPLE FRACTURES [None]
  - OPTIC NEURITIS [None]
  - PYREXIA [None]
  - THROMBOSIS [None]
  - VOMITING [None]
